FAERS Safety Report 4263609-4 (Version None)
Quarter: 2004Q1

REPORT INFORMATION
  Report Type: 
  Country: None (occurrence: None)
  Receive Date: 20040102
  Receipt Date: 20031203
  Transmission Date: 20041129
  Serious: Yes (Death)
  Sender: FDA-Public Use
  Company Number: 2003IC000604

PATIENT
  Age: 64 Year
  Sex: Male

DRUGS (8)
  1. FLUOROURACIL [Suspect]
     Indication: GASTRIC CANCER
     Dosage: 500 MG/ DAILY; INTRAVENOUS
     Route: 042
     Dates: start: 20011102, end: 20011120
  2. CISPLATIN [Suspect]
     Indication: GASTRIC CANCER
     Dosage: 10 MG; DAILY; INTRAVENOUS
     Route: 042
     Dates: start: 20011102, end: 20011120
  3. KYTRIL [Concomitant]
  4. CIMETIDINE HCL [Concomitant]
  5. CEREKINON [Concomitant]
  6. APLACE [Concomitant]
  7. LIPITOR [Concomitant]
  8. POLAPREZINC [Concomitant]

REACTIONS (1)
  - CEREBRAL INFARCTION [None]
